FAERS Safety Report 6282441-3 (Version None)
Quarter: 2009Q3

REPORT INFORMATION
  Report Type: 
  Country: None (occurrence: None)
  Receive Date: 20090724
  Receipt Date: 20090716
  Transmission Date: 20100115
  Serious: Yes (Other)
  Sender: FDA-Public Use
  Company Number: US-ROCHE-641376

PATIENT
  Sex: Female

DRUGS (5)
  1. BONIVA [Suspect]
     Indication: DRUG USE FOR UNKNOWN INDICATION
     Route: 042
  2. FISH OIL [Concomitant]
  3. FLAXSEED [Concomitant]
  4. ASPIRIN [Concomitant]
  5. OSCAL [Concomitant]

REACTIONS (1)
  - MYOCLONUS [None]
